FAERS Safety Report 21512510 (Version 3)
Quarter: 2023Q2

REPORT INFORMATION
  Report Type: Spontaneous
  Country: US (occurrence: US)
  Receive Date: 20221027
  Receipt Date: 20230406
  Transmission Date: 20230721
  Serious: Yes (Hospitalization, Other)
  Sender: FDA-Public Use
  Company Number: US-CIPLA LTD.-2022US06244

PATIENT

DRUGS (6)
  1. CARBOPLATIN [Suspect]
     Active Substance: CARBOPLATIN
     Indication: Cholangiocarcinoma
     Dosage: UNK
     Route: 013
  2. CARBOPLATIN [Suspect]
     Active Substance: CARBOPLATIN
     Indication: Transcatheter arterial chemoembolisation
  3. IRINOTECAN [Suspect]
     Active Substance: IRINOTECAN
     Indication: Cholangiocarcinoma
     Dosage: UNK
     Route: 013
  4. IRINOTECAN [Suspect]
     Active Substance: IRINOTECAN
     Indication: Transcatheter arterial chemoembolisation
  5. GEMCITABINE [Suspect]
     Active Substance: GEMCITABINE
     Indication: Cholangiocarcinoma
     Dosage: UNK
     Route: 013
  6. GEMCITABINE [Suspect]
     Active Substance: GEMCITABINE
     Indication: Transcatheter arterial chemoembolisation

REACTIONS (1)
  - Febrile neutropenia [Unknown]
